FAERS Safety Report 8457530-5 (Version None)
Quarter: 2012Q2

REPORT INFORMATION
  Report Type: 
  Country: None (occurrence: None)
  Receive Date: 20120622
  Receipt Date: 20120613
  Transmission Date: 20120825
  Serious: Yes (Death)
  Sender: FDA-Public Use
  Company Number: US-BIOGENIDEC-2012BI018821

PATIENT
  Age: 64 Year
  Sex: Male

DRUGS (1)
  1. TYSABRI [Suspect]
     Indication: MULTIPLE SCLEROSIS
     Route: 042
     Dates: start: 20070321, end: 20120430

REACTIONS (5)
  - FATIGUE [None]
  - COMPLETED SUICIDE [None]
  - HYPERSOMNIA [None]
  - COGNITIVE DISORDER [None]
  - CONFUSIONAL STATE [None]
